FAERS Safety Report 5046375-4 (Version None)
Quarter: 2006Q3

REPORT INFORMATION
  Report Type: 
  Country: None (occurrence: None)
  Receive Date: 20060710
  Receipt Date: 20051103
  Transmission Date: 20061208
  Serious: Yes (Hospitalization, Disabling)
  Sender: FDA-Public Use
  Company Number: US-ROCHE-423646

PATIENT
  Age: 29 Year
  Sex: Female
  Weight: 54.9 kg

DRUGS (1)
  1. ACCUTANE [Suspect]
     Indication: ACNE
     Route: 048
     Dates: start: 19840115, end: 19840615

REACTIONS (38)
  - ANHEDONIA [None]
  - ANXIETY [None]
  - ASTHENIA [None]
  - BACK PAIN [None]
  - BUNDLE BRANCH BLOCK RIGHT [None]
  - CARDIAC DISORDER [None]
  - COLITIS [None]
  - COLITIS ULCERATIVE [None]
  - CROHN'S DISEASE [None]
  - DECREASED APPETITE [None]
  - DEPRESSION [None]
  - ELECTROCARDIOGRAM P WAVE ABNORMAL [None]
  - FATIGUE [None]
  - FEELING GUILTY [None]
  - FEELINGS OF WORTHLESSNESS [None]
  - GASTROINTESTINAL DISORDER [None]
  - HAEMANGIOMA [None]
  - HEPATIC CYST [None]
  - HEPATIC ENZYME INCREASED [None]
  - HEPATIC LESION [None]
  - INCREASED APPETITE [None]
  - INFLAMMATORY BOWEL DISEASE [None]
  - INTESTINAL HAEMORRHAGE [None]
  - IRRITABILITY [None]
  - IRRITABLE BOWEL SYNDROME [None]
  - MEASLES [None]
  - MUSCULOSKELETAL DISORDER [None]
  - MYOCARDIAL ISCHAEMIA [None]
  - NECK INJURY [None]
  - OSTEOPENIA [None]
  - OVARIAN CYST [None]
  - PAIN IN EXTREMITY [None]
  - PERFORMANCE FEAR [None]
  - RIB FRACTURE [None]
  - SOCIAL FEAR [None]
  - TENDONITIS [None]
  - VASCULAR NEOPLASM [None]
  - WEIGHT FLUCTUATION [None]
